FAERS Safety Report 24928465 (Version 1)
Quarter: 2025Q1

REPORT INFORMATION
  Report Type: Spontaneous
  Country: US (occurrence: None)
  Receive Date: 20250204
  Receipt Date: 20250204
  Transmission Date: 20250409
  Serious: Yes (Other)
  Sender: FDA-CTU
  Company Number: None

PATIENT
  Age: 62 Year
  Sex: Male
  Weight: 87.75 kg

DRUGS (3)
  1. TADALAFIL [Suspect]
     Active Substance: TADALAFIL
     Indication: Erectile dysfunction
     Route: 048
     Dates: start: 20230930, end: 20250204
  2. ATORVASTATIN [Concomitant]
     Active Substance: ATORVASTATIN
  3. TADALAFIL [Concomitant]
     Active Substance: TADALAFIL

REACTIONS (8)
  - Drug interaction [None]
  - Syncope [None]
  - Hyperhidrosis [None]
  - Nausea [None]
  - Influenza like illness [None]
  - Dehydration [None]
  - Loss of consciousness [None]
  - Movement disorder [None]

NARRATIVE: CASE EVENT DATE: 20250203
